FAERS Safety Report 7158097-4 (Version None)
Quarter: 2010Q4

REPORT INFORMATION
  Report Type: 
  Country: None (occurrence: None)
  Receive Date: 20101214
  Receipt Date: 20100423
  Transmission Date: 20110411
  Serious: No
  Sender: FDA-Public Use
  Company Number: US-ASTRAZENECA-2010SE18401

PATIENT
  Age: 62 Year
  Sex: Male
  Weight: 74.8 kg

DRUGS (1)
  1. CRESTOR [Suspect]
     Indication: BLOOD TRIGLYCERIDES INCREASED
     Dosage: ONCE/ SINGLE ADMINISTRATION
     Route: 048
     Dates: start: 20100423, end: 20100424

REACTIONS (3)
  - CHILLS [None]
  - HYPERHIDROSIS [None]
  - MALAISE [None]
